FAERS Safety Report 24453771 (Version 2)
Quarter: 2024Q4

REPORT INFORMATION
  Report Type: Report from Study
  Country: CA (occurrence: CA)
  Receive Date: 20241017
  Receipt Date: 20241018
  Transmission Date: 20250115
  Serious: No
  Sender: ROCHE
  Company Number: CA-ROCHE-3440217

PATIENT
  Age: 57 Year
  Sex: Female
  Weight: 68.0 kg

DRUGS (15)
  1. RITUXAN [Suspect]
     Active Substance: RITUXIMAB
     Indication: Rheumatoid arthritis
     Dosage: DAY 1; 15
     Route: 042
     Dates: start: 20100915
  2. RITUXAN [Suspect]
     Active Substance: RITUXIMAB
     Route: 042
  3. ACETAMINOPHEN [Concomitant]
     Active Substance: ACETAMINOPHEN
     Indication: Premedication
     Route: 048
     Dates: start: 20100915
  4. BETAMETHASONE VALERATE [Concomitant]
     Active Substance: BETAMETHASONE VALERATE
  5. DIPHENHYDRAMINE [Concomitant]
     Active Substance: DIPHENHYDRAMINE
     Indication: Premedication
     Route: 048
     Dates: start: 20100915
  6. EPIPEN [Concomitant]
     Active Substance: EPINEPHRINE
     Indication: Hypersensitivity
  7. FOLIC ACID [Concomitant]
     Active Substance: FOLIC ACID
  8. MELOXICAM [Concomitant]
     Active Substance: MELOXICAM
  9. METHOTREXATE [Concomitant]
     Active Substance: METHOTREXATE
  10. METHYLPREDNISOLONE [Concomitant]
     Active Substance: METHYLPREDNISOLONE
     Indication: Premedication
     Route: 042
     Dates: start: 20100915
  11. PANTOPRAZOLE [Concomitant]
     Active Substance: PANTOPRAZOLE
  12. PROGESTERONE [Concomitant]
     Active Substance: PROGESTERONE
  13. SPIRIVA [Concomitant]
     Active Substance: TIOTROPIUM BROMIDE MONOHYDRATE
     Dosage: 2 PUFFS A DAY
  14. CETIRIZINE HYDROCHLORIDE [Concomitant]
     Active Substance: CETIRIZINE HYDROCHLORIDE
  15. RYALTRIS [Concomitant]
     Active Substance: MOMETASONE FUROATE MONOHYDRATE\OLOPATADINE HYDROCHLORIDE

REACTIONS (17)
  - Viral infection [Unknown]
  - Pulmonary mass [Unknown]
  - Emotional disorder [Unknown]
  - Weight increased [Unknown]
  - Menopause [Unknown]
  - Allergy to animal [Unknown]
  - Allergy to plants [Unknown]
  - Pyrexia [Unknown]
  - Asthenia [Unknown]
  - Vomiting [Unknown]
  - Ill-defined disorder [Unknown]
  - Lethargy [Unknown]
  - Cough [Unknown]
  - Chest discomfort [Unknown]
  - Musculoskeletal chest pain [Unknown]
  - Alopecia [Unknown]
  - Night sweats [Unknown]

NARRATIVE: CASE EVENT DATE: 20230501
